FAERS Safety Report 6752771-7 (Version None)
Quarter: 2010Q2

REPORT INFORMATION
  Report Type: 
  Country: None (occurrence: None)
  Receive Date: 20100602
  Receipt Date: 20100602
  Transmission Date: 20101027
  Serious: Yes (Hospitalization)
  Sender: FDA-Public Use
  Company Number: None

PATIENT
  Age: 59 Year
  Weight: 78.1094 kg

DRUGS (3)
  1. EVEROLIMUS [Suspect]
     Indication: BREAST CANCER
     Dosage: 30MG PO WEEKLY
     Route: 048
     Dates: start: 20100304, end: 20100516
  2. CISPLATIN [Suspect]
     Indication: BREAST CANCER
     Dosage: 25MG/M2
     Dates: start: 20100324, end: 20100519
  3. TAXOL [Suspect]
     Indication: BREAST CANCER
     Dosage: 80MG/M2 WEEKLY
     Dates: start: 20100324, end: 20100519

REACTIONS (2)
  - ANAEMIA [None]
  - PNEUMONIA [None]
